FAERS Safety Report 4984246-X (Version None)
Quarter: 2006Q2

REPORT INFORMATION
  Report Type: 
  Country: None (occurrence: None)
  Receive Date: 20060427
  Receipt Date: 20060420
  Transmission Date: 20061013
  Serious: Yes (Hospitalization, Other)
  Sender: FDA-Public Use
  Company Number: FR-AVENTIS-200611501FR

PATIENT
  Age: 32 Year
  Sex: Female

DRUGS (4)
  1. KETEK [Suspect]
     Indication: RESPIRATORY TRACT INFECTION
     Route: 048
     Dates: start: 20060418, end: 20060419
  2. IBUPROFEN [Concomitant]
     Route: 048
     Dates: start: 20060418
  3. PARACETAMOL [Concomitant]
     Route: 048
     Dates: start: 20060418
  4. DERINOX [Concomitant]
     Route: 045
     Dates: start: 20060418

REACTIONS (2)
  - VISION BLURRED [None]
  - VISUAL ACUITY REDUCED [None]
